FAERS Safety Report 4798343-5 (Version None)
Quarter: 2005Q4

REPORT INFORMATION
  Report Type: 
  Country: None (occurrence: None)
  Receive Date: 20051014
  Receipt Date: 20051004
  Transmission Date: 20060501
  Serious: Yes (Death)
  Sender: FDA-Public Use
  Company Number: AT-NOVOPROD-247613

PATIENT
  Sex: Female

DRUGS (2)
  1. NORDITROPIN SIMPLEXX [Suspect]
     Indication: BODY MASS INDEX INCREASED
     Dosage: .28 MG/KG, WK
  2. NORDITROPIN SIMPLEXX [Suspect]
     Dosage: .14 UNK, UNK

REACTIONS (3)
  - HYPOVENTILATION [None]
  - RESPIRATORY TRACT INFECTION [None]
  - SLEEP APNOEA SYNDROME [None]
